FAERS Safety Report 4714286-7 (Version None)
Quarter: 2005Q3

REPORT INFORMATION
  Report Type: 
  Country: None (occurrence: None)
  Receive Date: 20050714
  Receipt Date: 20050704
  Transmission Date: 20060218
  Serious: Yes (Other)
  Sender: FDA-Public Use
  Company Number: JP-MERCK-0507USA00760

PATIENT
  Age: 84 Year
  Sex: Female

DRUGS (10)
  1. PEPCID [Suspect]
     Route: 048
     Dates: end: 20050624
  2. PRIMPERAN INJ [Concomitant]
     Route: 048
     Dates: end: 20050624
  3. ETODOLAC [Concomitant]
     Route: 048
     Dates: end: 20050624
  4. MUCOSOLVAN [Concomitant]
     Route: 048
     Dates: end: 20050624
  5. CRAVIT [Concomitant]
     Route: 048
     Dates: end: 20050624
  6. LAC-B [Concomitant]
     Route: 048
     Dates: end: 20050624
  7. RHYTHMY [Concomitant]
     Route: 048
     Dates: end: 20050624
  8. LOXONIN [Suspect]
     Indication: PAIN
     Route: 048
     Dates: end: 20050624
  9. NITRODERM [Concomitant]
     Route: 061
     Dates: end: 20050706
  10. PENTCILLIN [Concomitant]
     Route: 065
     Dates: start: 20050625, end: 20050706

REACTIONS (1)
  - DEPRESSED LEVEL OF CONSCIOUSNESS [None]
